FAERS Safety Report 10022602 (Version 1)
Quarter: 2014Q1

REPORT INFORMATION
  Report Type: Spontaneous
  Country: US (occurrence: US)
  Receive Date: 20140319
  Receipt Date: 20140319
  Transmission Date: 20141002
  Serious: Yes (Other)
  Sender: FDA-Public Use
  Company Number: US-MALLINCKRODT-T201401582

PATIENT
  Age: 72 Year
  Sex: Female

DRUGS (1)
  1. OXYCODONE [Suspect]
     Indication: PAIN
     Dosage: 5 MG Q4H
     Route: 048
     Dates: start: 20140214, end: 20140215

REACTIONS (3)
  - Diplegia [Recovered/Resolved]
  - Pain in extremity [Recovered/Resolved]
  - Muscular weakness [Recovered/Resolved]
